FAERS Safety Report 12427665 (Version 2)
Quarter: 2016Q2

REPORT INFORMATION
  Report Type: Report from Study
  Country: US (occurrence: US)
  Receive Date: 20160602
  Receipt Date: 20160610
  Transmission Date: 20160815
  Serious: Yes (Life-Threatening, Hospitalization)
  Sender: FDA-Public Use
  Company Number: US-ROCHE-1767429

PATIENT
  Age: 36 Year
  Sex: Male
  Weight: 83.26 kg

DRUGS (22)
  1. BLINDED BERAPROST SODIUM [Suspect]
     Active Substance: BERAPROST SODIUM
     Indication: PULMONARY ARTERIAL HYPERTENSION
     Route: 048
     Dates: start: 20141113, end: 20160110
  2. CAPTOPRIL. [Concomitant]
     Active Substance: CAPTOPRIL
     Indication: HYPERTENSION
     Route: 048
     Dates: start: 20141125
  3. ONDANSETRON [Concomitant]
     Active Substance: ONDANSETRON
     Indication: NAUSEA
     Route: 048
     Dates: start: 20151028
  4. ATROPINE SULFATE. [Concomitant]
     Active Substance: ATROPINE SULFATE
     Indication: BLINDNESS
     Route: 065
     Dates: start: 20150304
  5. LASIX [Concomitant]
     Active Substance: FUROSEMIDE
     Route: 065
  6. ASPIRIN. [Concomitant]
     Active Substance: ASPIRIN
     Indication: VASCULITIS
     Route: 048
     Dates: start: 20140301
  7. FENTANYL. [Concomitant]
     Active Substance: FENTANYL
     Indication: PAIN
     Dosage: 15 MCG/HR
     Route: 062
     Dates: start: 20151103
  8. FISH OIL [Concomitant]
     Active Substance: FISH OIL
     Route: 048
     Dates: start: 20130101
  9. VITAMIN D3 [Concomitant]
     Active Substance: CHOLECALCIFEROL
     Route: 048
     Dates: start: 20140201
  10. OXYCODONE/PARACETAMOL [Concomitant]
     Active Substance: ACETAMINOPHEN\OXYCODONE HYDROCHLORIDE
     Indication: PAIN
     Dosage: 10/325 MG
     Route: 048
     Dates: start: 20150225
  11. FERROUS SULFATE. [Concomitant]
     Active Substance: FERROUS SULFATE
     Route: 065
  12. AMBIEN [Concomitant]
     Active Substance: ZOLPIDEM TARTRATE
     Indication: INSOMNIA
     Route: 048
     Dates: start: 20140801
  13. LISINOPRIL. [Concomitant]
     Active Substance: LISINOPRIL
     Indication: HYPERTENSION
     Route: 048
     Dates: start: 20160109
  14. POTASSIUM CHLORIDE. [Concomitant]
     Active Substance: POTASSIUM CHLORIDE
     Route: 065
  15. PREDNISONE. [Concomitant]
     Active Substance: PREDNISONE
     Route: 065
  16. LEXAPRO [Concomitant]
     Active Substance: ESCITALOPRAM OXALATE
     Indication: DEPRESSION
     Route: 048
     Dates: start: 20150601
  17. DUREZOL [Concomitant]
     Active Substance: DIFLUPREDNATE
     Indication: BLINDNESS
     Route: 065
     Dates: start: 20150518
  18. RITUXIMAB [Suspect]
     Active Substance: RITUXIMAB
     Indication: SCLERODERMA
     Dosage: DAILY DOSE
     Route: 042
     Dates: start: 20150603
  19. ADCIRCA [Concomitant]
     Active Substance: TADALAFIL
     Dosage: DAILY DOSE
     Route: 065
     Dates: start: 20130927
  20. FOSAMAX [Concomitant]
     Active Substance: ALENDRONATE SODIUM
     Route: 048
     Dates: start: 20151001
  21. TREPROSTINIL SODIUM [Suspect]
     Active Substance: TREPROSTINIL SODIUM
     Indication: PULMONARY ARTERIAL HYPERTENSION
     Dosage: DOSE STRENGTH: 0.6MG/ML
     Route: 050
     Dates: start: 20131219
  22. DHEA [Concomitant]
     Active Substance: PRASTERONE
     Route: 048
     Dates: start: 20151103

REACTIONS (4)
  - Septic shock [Recovered/Resolved]
  - Pneumococcal bacteraemia [Recovered/Resolved]
  - Acute respiratory failure [Recovered/Resolved with Sequelae]
  - Pneumonia pneumococcal [Recovered/Resolved]

NARRATIVE: CASE EVENT DATE: 20160311
